FAERS Safety Report 6688366-3 (Version None)
Quarter: 2010Q2

REPORT INFORMATION
  Report Type: 
  Country: None (occurrence: None)
  Receive Date: 20100420
  Receipt Date: 20100415
  Transmission Date: 20101027
  Serious: Yes (Death, Hospitalization)
  Sender: FDA-Public Use
  Company Number: CL-ROCHE-697815

PATIENT
  Sex: Male
  Weight: 62 kg

DRUGS (1)
  1. CAPECITABINE [Suspect]
     Indication: GASTRIC CANCER
     Route: 048
     Dates: start: 20100305

REACTIONS (2)
  - DEHYDRATION [None]
  - VOMITING [None]
